FAERS Safety Report 8612411-9 (Version None)
Quarter: 2012Q3

REPORT INFORMATION
  Report Type: 
  Country: None (occurrence: None)
  Receive Date: 20120822
  Receipt Date: 20120814
  Transmission Date: 20120928
  Serious: Yes (Hospitalization, Other)
  Sender: FDA-Public Use
  Company Number: US-BAXTER-2012BAX002058

PATIENT
  Sex: Male

DRUGS (2)
  1. DIANEAL PD-2 W/ DEXTROSE 1.5% [Suspect]
     Indication: PERITONEAL DIALYSIS
     Route: 033
  2. EXTRANEAL [Suspect]
     Indication: PERITONEAL DIALYSIS
     Route: 033

REACTIONS (10)
  - DISORIENTATION [None]
  - SKIN ULCER [None]
  - SUBDURAL HAEMORRHAGE [None]
  - ULCER [None]
  - HYPOPHAGIA [None]
  - BLOOD ALBUMIN DECREASED [None]
  - FALL [None]
  - INCISION SITE COMPLICATION [None]
  - HEAD INJURY [None]
  - GANGRENE [None]
